FAERS Safety Report 13278545 (Version 1)
Quarter: 2017Q1

REPORT INFORMATION
  Report Type: Spontaneous
  Country: US (occurrence: US)
  Receive Date: 20170228
  Receipt Date: 20170228
  Transmission Date: 20170428
  Serious: No
  Sender: FDA-Public Use
  Company Number: US-TAIHO ONCOLOGY INC-EU-2017-00343

PATIENT
  Age: 61 Year
  Sex: Male

DRUGS (7)
  1. LONSURF [Suspect]
     Active Substance: TIPIRACIL HYDROCHLORIDE\TRIFLURIDINE
     Indication: COLON CANCER
     Dosage: 80 MG IN AM AND 60 MG IN PM
     Route: 048
     Dates: start: 20170213
  2. MORPHINE [Concomitant]
     Active Substance: MORPHINE
     Dosage: NI
  3. OXYBUTYNIN [Concomitant]
     Active Substance: OXYBUTYNIN
     Dosage: NI
  4. OXYCODONE [Concomitant]
     Active Substance: OXYCODONE
     Dosage: NI
  5. MIRALAX [Concomitant]
     Active Substance: POLYETHYLENE GLYCOL 3350
     Dosage: NI
  6. COMPAZINE [Concomitant]
     Active Substance: PROCHLORPERAZINE MALEATE
     Dosage: NI
  7. ERGOCALCIFEROL/ASCORBIC ACID/PYRIDOXINE HYDROCHLORIDE/BIOTIN/FOLIC ACID/COLECALCIFEROL/CYANOCOBALAMI [Concomitant]
     Dosage: NI

REACTIONS (3)
  - Nausea [Recovered/Resolved]
  - Somnolence [Unknown]
  - Vomiting [Recovered/Resolved]

NARRATIVE: CASE EVENT DATE: 201702
